FAERS Safety Report 5834644-7 (Version None)
Quarter: 2008Q3

REPORT INFORMATION
  Report Type: 
  Country: None (occurrence: None)
  Receive Date: 20080801
  Receipt Date: 20080104
  Transmission Date: 20090109
  Serious: Yes (Hospitalization)
  Sender: FDA-Public Use
  Company Number: US240765

PATIENT
  Age: 70 Year
  Sex: Male

DRUGS (4)
  1. PANITUMUMAB (PANITUMUMAB) [Suspect]
     Indication: SQUAMOUS CELL CARCINOMA
     Dosage: 630 MG, 1 IN 3 WEEKS, IV
     Route: 042
     Dates: start: 20070820, end: 20070820
  2. CISPLATIN [Suspect]
     Indication: SQUAMOUS CELL CARCINOMA
     Dosage: IV
     Route: 042
     Dates: start: 20070820
  3. DOCETAXEL [Suspect]
     Indication: SQUAMOUS CELL CARCINOMA
     Dosage: IV
     Route: 042
     Dates: start: 20070820
  4. PEGFILGRASTIM(PEGFILGRASTIM) (PEGFILGRASTIM) [Concomitant]

REACTIONS (22)
  - ACTIVATED PARTIAL THROMBOPLASTIN TIME PROLONGED [None]
  - ATELECTASIS [None]
  - ATRIAL FIBRILLATION [None]
  - BACTERIA URINE IDENTIFIED [None]
  - BLOOD CHLORIDE INCREASED [None]
  - BLOOD GLUCOSE INCREASED [None]
  - BLOOD SODIUM DECREASED [None]
  - CALCIUM IONISED DECREASED [None]
  - CONDITION AGGRAVATED [None]
  - DEHYDRATION [None]
  - DYSPHAGIA [None]
  - ELECTROLYTE IMBALANCE [None]
  - INTERNATIONAL NORMALISED RATIO INCREASED [None]
  - LOBAR PNEUMONIA [None]
  - MYOCARDIAL ISCHAEMIA [None]
  - NEUTROPENIC SEPSIS [None]
  - PANCYTOPENIA [None]
  - PLATELET MORPHOLOGY ABNORMAL [None]
  - PNEUMONIA KLEBSIELLA [None]
  - PROTHROMBIN TIME PROLONGED [None]
  - STAPHYLOCOCCAL INFECTION [None]
  - URINARY TRACT INFECTION [None]
